FAERS Safety Report 16225211 (Version 6)
Quarter: 2019Q3

REPORT INFORMATION
  Report Type: Report from Study
  Country: US (occurrence: US)
  Receive Date: 20190422
  Receipt Date: 20190930
  Transmission Date: 20191004
  Serious: Yes (Hospitalization)
  Sender: FDA-Public Use
  Company Number: US-PFIZER INC-2019170731

PATIENT
  Age: 76 Year
  Sex: Male
  Weight: 48 kg

DRUGS (9)
  1. DOCETAXEL. [Suspect]
     Active Substance: DOCETAXEL
     Indication: PROSTATE CANCER
     Dosage: 109 MG, EVERY 3 WEEKS
     Route: 042
     Dates: start: 20190208, end: 20190530
  2. AMARYL [Concomitant]
     Active Substance: GLIMEPIRIDE
     Dosage: 4 MG, 1X/DAY
     Route: 065
  3. MIRTAZAPINE. [Concomitant]
     Active Substance: MIRTAZAPINE
     Dosage: UNK UNK, UNKNOWN FREQ.
     Route: 065
  4. LOSARTAN. [Concomitant]
     Active Substance: LOSARTAN
     Dosage: UNK UNK, UNKNOWN FREQ.
     Route: 065
     Dates: start: 20190521
  5. METFORMIN [Concomitant]
     Active Substance: METFORMIN HYDROCHLORIDE
     Dosage: UNK UNK, UNKNOWN FREQ.
     Route: 065
  6. ONDANSETRON [Concomitant]
     Active Substance: ONDANSETRON
     Dosage: UNK UNK, UNKNOWN FREQ.
     Route: 065
  7. ENZALUTAMIDE [Suspect]
     Active Substance: ENZALUTAMIDE
     Indication: PROSTATE CANCER
     Dosage: 160 MG, 1X/DAY
     Route: 048
     Dates: start: 20190208, end: 20190604
  8. DEGARELIX ACETATE [Suspect]
     Active Substance: DEGARELIX ACETATE
     Indication: PROSTATE CANCER
     Dosage: 160 MG, MONTHLY
     Route: 058
     Dates: start: 20190114, end: 20190625
  9. LIPITOR [Concomitant]
     Active Substance: ATORVASTATIN CALCIUM
     Dosage: UNK UNK, UNKNOWN FREQ.
     Route: 065

REACTIONS (9)
  - Neutropenia [Recovering/Resolving]
  - Oesophageal infection [Recovering/Resolving]
  - Encephalopathy [Recovering/Resolving]
  - Urethritis [Recovering/Resolving]
  - Hypoglycaemia [Unknown]
  - Prescribed overdose [Unknown]
  - Dysphagia [Recovering/Resolving]
  - Off label use [Unknown]
  - Hyperglycaemia [Recovering/Resolving]

NARRATIVE: CASE EVENT DATE: 20190408
